FAERS Safety Report 9610704 (Version 2)
Quarter: 2013Q4

REPORT INFORMATION
  Report Type: Spontaneous
  Country: US (occurrence: US)
  Receive Date: 20131009
  Receipt Date: 20131014
  Transmission Date: 20140711
  Serious: No
  Sender: FDA-Public Use
  Company Number: US-009507513-1310USA002274

PATIENT
  Age: 58 Year
  Sex: Female

DRUGS (3)
  1. ASMANEX TWISTHALER [Suspect]
     Indication: PERFUME SENSITIVITY
     Dosage: ONE DOSE IN THE AM AND ONE DOSE AT NIGHT
     Route: 055
     Dates: start: 2011
  2. ASMANEX TWISTHALER [Suspect]
     Indication: SMOKE SENSITIVITY
     Dosage: ONE DOSE IN THE AM AND ONE DOSE AT NIGHT
     Route: 055
  3. VENTOLIN (ALBUTEROL SULFATE) [Concomitant]
     Route: 055

REACTIONS (4)
  - Dyspnoea [Recovering/Resolving]
  - Off label use [Unknown]
  - Feeling abnormal [Recovering/Resolving]
  - Product quality issue [Unknown]
